FAERS Safety Report 8955866 (Version 1)
Quarter: 2012Q4

REPORT INFORMATION
  Report Type: 
  Country: US (occurrence: US)
  Receive Date: 20121210
  Receipt Date: 20121210
  Transmission Date: 20130627
  Serious: Yes (Hospitalization)
  Sender: FDA-Public Use
  Company Number: US-B.I. PHARMACEUTICALS,INC./RIDGEFIELD-2012-BI-02265BP

PATIENT
  Sex: Male

DRUGS (9)
  1. PRADAXA [Suspect]
     Indication: ATRIAL FIBRILLATION
     Dosage: 300 mg
     Route: 048
     Dates: start: 201211
  2. INSULIN GLARGINE [Concomitant]
     Indication: DIABETES MELLITUS
     Dosage: 15 U
     Route: 058
  3. DIGOXIN [Concomitant]
     Indication: CARDIAC FAILURE
     Dosage: 250 mcg
     Route: 048
  4. METOPROLOL [Concomitant]
     Indication: CARDIAC FAILURE
     Dosage: 300 mg
     Route: 048
  5. SPIRONOLACTONE [Concomitant]
     Indication: CARDIAC FAILURE
     Dosage: 25 mg
     Route: 048
  6. FERROUS SULFATE [Concomitant]
     Indication: ANAEMIA
     Dosage: 325 mg
     Route: 048
  7. ATORVASTATIN [Concomitant]
     Indication: BLOOD CHOLESTEROL INCREASED
     Dosage: 40 mg
     Route: 048
  8. PEPCID [Concomitant]
     Dosage: 40 mg
     Route: 048
  9. INSULIN LISPRO [Concomitant]
     Indication: DIABETES MELLITUS
     Dosage: 10 U
     Route: 058

REACTIONS (1)
  - International normalised ratio increased [Not Recovered/Not Resolved]
